FAERS Safety Report 12701765 (Version 1)
Quarter: 2016Q3

REPORT INFORMATION
  Report Type: Spontaneous
  Country: US (occurrence: US)
  Receive Date: 20160831
  Receipt Date: 20160831
  Transmission Date: 20161109
  Serious: No
  Sender: FDA-Public Use
  Company Number: US-JAZZ-2016-US-007472

PATIENT
  Sex: Female

DRUGS (43)
  1. XYREM [Suspect]
     Active Substance: SODIUM OXYBATE
     Indication: NARCOLEPSY
     Dosage: 2.25 G, BID
     Route: 048
     Dates: start: 201506, end: 201507
  2. FENTANYL. [Concomitant]
     Active Substance: FENTANYL
  3. VIIBRYD [Concomitant]
     Active Substance: VILAZODONE HYDROCHLORIDE
  4. FERROUS SULFATE. [Concomitant]
     Active Substance: FERROUS SULFATE
  5. CO Q10 SG [Concomitant]
  6. GABAPENTIN. [Concomitant]
     Active Substance: GABAPENTIN
  7. LEVOCETIRIZINE [Concomitant]
     Active Substance: LEVOCETIRIZINE
  8. MODAFINIL. [Concomitant]
     Active Substance: MODAFINIL
  9. XOLAIR [Concomitant]
     Active Substance: OMALIZUMAB
  10. LEVOTHYROXINE. [Concomitant]
     Active Substance: LEVOTHYROXINE
  11. NASONEX [Concomitant]
     Active Substance: MOMETASONE FUROATE
  12. SPIRONOLACTONE. [Concomitant]
     Active Substance: SPIRONOLACTONE
  13. VAGIFEM [Concomitant]
     Active Substance: ESTRADIOL
  14. VENTOLIN HFA [Concomitant]
     Active Substance: ALBUTEROL SULFATE
  15. XYREM [Suspect]
     Active Substance: SODIUM OXYBATE
     Indication: CATAPLEXY
     Dosage: DOSE ADJUSTMENTS
     Route: 048
     Dates: start: 2015, end: 2015
  16. MAGNESIUM GLUCONATE [Concomitant]
     Active Substance: MAGNESIUM GLUCONATE
  17. CRESTOR [Concomitant]
     Active Substance: ROSUVASTATIN CALCIUM
  18. FIORICET [Concomitant]
     Active Substance: ACETAMINOPHEN\BUTALBITAL\CAFFEINE
  19. HYDROCHLOROTHIAZIDE. [Concomitant]
     Active Substance: HYDROCHLOROTHIAZIDE
  20. NEXIUM [Concomitant]
     Active Substance: ESOMEPRAZOLE MAGNESIUM
  21. DILAUDID [Concomitant]
     Active Substance: HYDROMORPHONE HYDROCHLORIDE
  22. HORIZANT ER [Concomitant]
  23. OMEGA 3 FISH OIL [Concomitant]
     Active Substance: FISH OIL\OMEGA-3 FATTY ACIDS
  24. CELEBREX [Concomitant]
     Active Substance: CELECOXIB
  25. CYCLOBENZAPRINE [Concomitant]
     Active Substance: CYCLOBENZAPRINE
  26. DEXILANT DR [Concomitant]
  27. VIVELLE-DOT [Concomitant]
     Active Substance: ESTRADIOL
  28. METHOCARBAMOL. [Concomitant]
     Active Substance: METHOCARBAMOL
  29. VITAMIN D [Concomitant]
     Active Substance: CHOLECALCIFEROL
  30. CLONAZEPAM. [Concomitant]
     Active Substance: CLONAZEPAM
  31. FLUCONAZOLE. [Concomitant]
     Active Substance: FLUCONAZOLE
  32. HYDROXYZINE HCL [Concomitant]
     Active Substance: HYDROXYZINE HYDROCHLORIDE
  33. MULTIVITAMIN [Concomitant]
     Active Substance: VITAMINS
  34. PREDNISONE. [Concomitant]
     Active Substance: PREDNISONE
  35. BOTOX [Concomitant]
     Active Substance: ONABOTULINUMTOXINA
  36. METAXALONE. [Concomitant]
     Active Substance: METAXALONE
  37. MONTELUKAST SODIUM. [Concomitant]
     Active Substance: MONTELUKAST SODIUM
  38. XYREM [Suspect]
     Active Substance: SODIUM OXYBATE
     Dosage: 4.5 G, BID
     Route: 048
     Dates: start: 201508
  39. BEPREVE [Concomitant]
     Active Substance: BEPOTASTINE BESILATE
  40. DEXAMETHASONE. [Concomitant]
     Active Substance: DEXAMETHASONE
  41. DONNATAL [Concomitant]
     Active Substance: ATROPINE SULFATE\HYOSCYAMINE SULFATE\PHENOBARBITAL\SCOPOLAMINE HYDROBROMIDE
  42. NEUPRO [Concomitant]
     Active Substance: ROTIGOTINE
  43. DOXYCYCLINE HYCLATE DR [Concomitant]
     Active Substance: DOXYCYCLINE HYCLATE

REACTIONS (1)
  - Malaise [Not Recovered/Not Resolved]
